FAERS Safety Report 16844634 (Version 1)
Quarter: 2019Q3

REPORT INFORMATION
  Report Type: Other
  Country: CA (occurrence: CA)
  Receive Date: 20190924
  Receipt Date: 20190924
  Transmission Date: 20191005
  Serious: Yes (Other)
  Sender: FDA-Public Use
  Company Number: CA-APOTEX-2019AP022266

PATIENT
  Sex: Female

DRUGS (1)
  1. TAMIOXIFEN [Suspect]
     Active Substance: TAMOXIFEN
     Indication: METASTATIC NEOPLASM
     Dosage: UNK
     Route: 065

REACTIONS (2)
  - Disease progression [Unknown]
  - Bone pain [Unknown]
